FAERS Safety Report 9511894 (Version 1)
Quarter: 2013Q1

REPORT INFORMATION
  Report Type: Spontaneous
  Country: US (occurrence: None)
  Receive Date: 20130305
  Receipt Date: 20130305
  Transmission Date: 20140127
  Serious: Yes (Hospitalization)
  Sender: FDA-Public Use
  Company Number: 163-21880-12111919

PATIENT
  Age: 68 Year
  Sex: Female

DRUGS (6)
  1. REVLIMID [Suspect]
     Indication: PLASMA CELL MYELOMA
     Dosage: 5 MG, 21 IN 21 D, PO
     Route: 048
     Dates: start: 20110210, end: 201210
  2. BABY ASPIRIN (ACETYLSALICYLIC ACID) (TABLETS) [Concomitant]
  3. GABAPENTIN (GABAPENTIN) (CAPSULES) [Concomitant]
  4. PRILOSEC (OMEPRAZOLE) (CAPSULES) [Concomitant]
  5. TYLENOL (PARACETAMOL) (TABLETS) [Concomitant]
  6. VITAMIN D (ERGOCALCIFEROL) (CAPSULES) [Concomitant]

REACTIONS (2)
  - Pneumonia legionella [None]
  - White blood cell count decreased [None]
